FAERS Safety Report 9565177 (Version 2)
Quarter: 2013Q3

REPORT INFORMATION
  Report Type: Report from Study
  Country: US (occurrence: US)
  Receive Date: 20130930
  Receipt Date: 20130930
  Transmission Date: 20140515
  Serious: Yes (Other)
  Sender: FDA-Public Use
  Company Number: US-ROCHE-1271005

PATIENT
  Sex: Male
  Weight: 75.36 kg

DRUGS (9)
  1. HERCEPTIN [Suspect]
     Indication: SALIVARY GLAND CANCER
     Dosage: Q3WKS TO COMPLETE A YEAR (THROUGH 09/2013)
     Route: 042
     Dates: start: 20130808
  2. HERCEPTIN [Suspect]
     Route: 042
     Dates: start: 20130909, end: 20130919
  3. LASIX 500 [Concomitant]
     Route: 048
  4. COUMADIN [Concomitant]
     Route: 048
  5. LEVOXYL [Concomitant]
     Route: 048
  6. DIGOXIN [Concomitant]
     Route: 048
  7. LORAZEPAM [Concomitant]
     Indication: NAUSEA
     Dosage: AS NEEDED
     Route: 048
  8. CREON [Concomitant]
     Dosage: WITH MEALS
     Route: 048
  9. FERROUS SULFATE [Concomitant]
     Route: 048

REACTIONS (6)
  - Heart rate irregular [Unknown]
  - Atrial fibrillation [Unknown]
  - Anaemia [Unknown]
  - Hypothyroidism [Unknown]
  - Calculus bladder [Unknown]
  - Cellulitis [Recovered/Resolved]
